FAERS Safety Report 7877472-3 (Version None)
Quarter: 2011Q4

REPORT INFORMATION
  Report Type: 
  Country: None (occurrence: None)
  Receive Date: 20111031
  Receipt Date: 20111027
  Transmission Date: 20120403
  Serious: Yes (Death, Hospitalization)
  Sender: FDA-Public Use
  Company Number: ES-PFIZER INC-2011261758

PATIENT
  Age: 70 Year
  Sex: Male

DRUGS (6)
  1. ENOXAPARIN SODIUM [Suspect]
     Dosage: 40 MG, UNK
     Route: 058
     Dates: start: 20110612, end: 20110617
  2. ZYVOX [Suspect]
     Dosage: 1200 MG, 1X/DAY
     Route: 042
     Dates: start: 20110610, end: 20110627
  3. ASPIRIN [Concomitant]
     Dosage: 100 MG, 1X/DAY
     Route: 048
     Dates: start: 20110612, end: 20110620
  4. SINTROM [Concomitant]
     Dosage: 4 MG, 1X/DAY
     Route: 048
     Dates: start: 20110530, end: 20110608
  5. ZYVOX [Suspect]
     Dosage: 1200 MG, 1X/DAY
     Route: 042
     Dates: start: 20110526, end: 20110601
  6. ENOXAPARIN SODIUM [Suspect]
     Dosage: 160 MG, 1X/DAY
     Route: 058
     Dates: start: 20110527, end: 20110529

REACTIONS (1)
  - THROMBOCYTOPENIA [None]
